FAERS Safety Report 4575363-7 (Version None)
Quarter: 2005Q1

REPORT INFORMATION
  Report Type: 
  Country: None (occurrence: None)
  Receive Date: 20050127
  Receipt Date: 20050127
  Transmission Date: 20050727
  Serious: No
  Sender: FDA-Public Use
  Company Number: None

PATIENT
  Sex: Male
  Weight: 85.7298 kg

DRUGS (3)
  1. OLANZAPINE [Suspect]
     Dosage: 10MG  PO
     Route: 048
     Dates: start: 20040708, end: 20040721
  2. RISPERIDONE [Concomitant]
  3. FLUOXETINE [Concomitant]

REACTIONS (3)
  - FEELING ABNORMAL [None]
  - FEELING JITTERY [None]
  - TACHYCARDIA [None]
